FAERS Safety Report 5748744-3 (Version None)
Quarter: 2008Q2

REPORT INFORMATION
  Report Type: 
  Country: None (occurrence: None)
  Receive Date: 20080521
  Receipt Date: 20080509
  Transmission Date: 20081010
  Serious: Yes (Hospitalization)
  Sender: FDA-Public Use
  Company Number: 2008AL004805

PATIENT
  Age: 48 Year
  Sex: Female

DRUGS (5)
  1. NAPROXEN [Suspect]
     Indication: BACK PAIN
     Dosage: QD; PO
     Route: 048
     Dates: start: 20080101, end: 20080311
  2. SUMATRIPTAN SUCCINATE [Concomitant]
  3. CETIRIZINE CROMOGLICATE LISETIL [Concomitant]
  4. TIMOLOL MALEATE [Concomitant]
  5. BENDROFLUMETHIAZIDE [Concomitant]

REACTIONS (4)
  - ABNORMAL FAECES [None]
  - DIARRHOEA HAEMORRHAGIC [None]
  - INFLAMMATORY BOWEL DISEASE [None]
  - PROCTOCOLITIS [None]
